FAERS Safety Report 6493321-2 (Version None)
Quarter: 2009Q4

REPORT INFORMATION
  Report Type: 
  Country: None (occurrence: None)
  Receive Date: 20091214
  Receipt Date: 20091202
  Transmission Date: 20100525
  Serious: Yes (Hospitalization)
  Sender: FDA-Public Use
  Company Number: US-ROCHE-673861

PATIENT
  Sex: Female

DRUGS (17)
  1. BEVACIZUMAB [Suspect]
     Indication: COLORECTAL CANCER
     Dosage: 5 MG/KG, Q2W
     Route: 042
     Dates: start: 20090223
  2. BEVACIZUMAB [Suspect]
     Dosage: UNK
     Route: 042
     Dates: start: 20071001
  3. BEVACIZUMAB [Suspect]
     Dosage: UNK
     Route: 042
     Dates: start: 20080501
  4. BEVACIZUMAB [Suspect]
     Dosage: UNK
     Route: 042
     Dates: start: 20080701
  5. BEVACIZUMAB [Suspect]
     Dosage: UNK
     Route: 042
     Dates: start: 20071201, end: 20080501
  6. BEVACIZUMAB [Suspect]
     Dosage: UNK
     Route: 042
     Dates: start: 20071101
  7. FLUOROURACIL [Suspect]
     Indication: COLORECTAL CANCER
     Dosage: 2400 MG/M2, UNK
     Route: 042
     Dates: start: 20071109
  8. FLUOROURACIL [Suspect]
     Dosage: UNK
     Route: 042
     Dates: start: 20071201, end: 20080501
  9. FLUOROURACIL [Suspect]
     Dosage: UNK
     Route: 042
     Dates: start: 20080501
  10. FOLINIC ACID [Suspect]
     Indication: COLORECTAL CANCER
     Dosage: 400 MG/M2, UNK
     Route: 042
     Dates: start: 20071207, end: 20080501
  11. IRINOTECAN HCL [Suspect]
     Indication: COLORECTAL CANCER
     Dosage: 180 MG/M2, UNK
     Route: 042
     Dates: start: 20090223
  12. METOPROLOL [Concomitant]
     Indication: DRUG USE FOR UNKNOWN INDICATION
     Dosage: 25 MG, QD
     Route: 048
  13. HYDROCHLOROTHIAZIDE [Concomitant]
     Indication: DRUG USE FOR UNKNOWN INDICATION
     Dosage: 12.5 MG, QD
     Route: 048
  14. AMLODIPINE [Concomitant]
     Indication: DRUG USE FOR UNKNOWN INDICATION
     Dosage: 5 MG, QD
     Route: 048
     Dates: start: 20080417
  15. LOPERAMIDE [Concomitant]
     Indication: DRUG USE FOR UNKNOWN INDICATION
     Dosage: 2 MG, UNK
     Route: 048
     Dates: start: 20090223
  16. PROCHLORPERAZINE [Concomitant]
     Indication: DRUG USE FOR UNKNOWN INDICATION
     Dosage: 10 MG, PRN
     Route: 048
     Dates: start: 20090223
  17. ONDANSETRON [Concomitant]
     Indication: DRUG USE FOR UNKNOWN INDICATION
     Dosage: 0.15 MG/KG, UNK
     Route: 042
     Dates: start: 20071109

REACTIONS (5)
  - FEMORAL NECK FRACTURE [None]
  - HIP FRACTURE [None]
  - NAUSEA [None]
  - SYNCOPE [None]
  - VOMITING [None]
